FAERS Safety Report 5947275-5 (Version None)
Quarter: 2008Q4

REPORT INFORMATION
  Report Type: 
  Country: None (occurrence: None)
  Receive Date: 20081110
  Receipt Date: 20081103
  Transmission Date: 20090506
  Serious: No
  Sender: FDA-Public Use
  Company Number: US-B.I. PHARMACEUTICALS,INC./RIDGEFIELD-2008-BP-16674BP

PATIENT
  Age: 62 Year
  Sex: Male

DRUGS (5)
  1. FLOMAX [Suspect]
     Indication: PROSTATOMEGALY
     Dosage: .4MG
     Route: 048
     Dates: start: 20081001
  2. CLEOCIN [Suspect]
     Indication: ENDODONTIC PROCEDURE
     Dates: start: 20081027
  3. AVODART [Concomitant]
     Indication: PROSTATOMEGALY
     Dates: start: 20060101
  4. NORVASC [Concomitant]
     Indication: HYPERTENSION
  5. LISINOPRIL [Concomitant]
     Indication: HYPERTENSION

REACTIONS (2)
  - DIARRHOEA [None]
  - DIZZINESS [None]
